FAERS Safety Report 10374134 (Version 2)
Quarter: 2014Q3

REPORT INFORMATION
  Report Type: Spontaneous
  Country: DE (occurrence: AT)
  Receive Date: 20140811
  Receipt Date: 20140927
  Transmission Date: 20150326
  Serious: Yes (Other)
  Sender: FDA-Public Use
  Company Number: GXKR2014AT002896

PATIENT
  Age: 70 Year
  Sex: Female

DRUGS (2)
  1. CLINDAC SANDOZ [Suspect]
     Active Substance: CLINDAMYCIN\CLINDAMYCIN PHOSPHATE
     Indication: SINUSITIS BACTERIAL
     Dosage: 300 MG, BID
     Route: 048
     Dates: start: 20140730
  2. HERBAL NOS [Concomitant]
     Active Substance: HERBALS
     Route: 048

REACTIONS (4)
  - Musculoskeletal pain [Recovered/Resolved]
  - Rash [Unknown]
  - Angioedema [Recovered/Resolved]
  - Joint effusion [Recovered/Resolved]
